FAERS Safety Report 9525063 (Version 3)
Quarter: 2014Q2

REPORT INFORMATION
  Report Type: Spontaneous
  Country: US (occurrence: None)
  Receive Date: 20130912
  Receipt Date: 20140408
  Transmission Date: 20141212
  Serious: Yes (Other)
  Sender: FDA-Public Use
  Company Number: 2013-US-000065

PATIENT
  Age: 33 Year
  Sex: Male

DRUGS (2)
  1. XYREM [Suspect]
     Indication: NARCOLEPSY
     Route: 048
     Dates: start: 201201, end: 2012
  2. XYREM [Suspect]
     Indication: CATAPLEXY
     Route: 048
     Dates: start: 201201, end: 2012

REACTIONS (7)
  - Loss of consciousness [None]
  - Thirst [None]
  - Feeling abnormal [None]
  - Blood cortisol increased [None]
  - Abdominal pain upper [None]
  - Gastritis [None]
  - Hypersensitivity [None]
